FAERS Safety Report 22097984 (Version 1)
Quarter: 2023Q1

REPORT INFORMATION
  Report Type: Other
  Country: None (occurrence: RU)
  Receive Date: 20230315
  Receipt Date: 20230315
  Transmission Date: 20230417
  Serious: Yes (Other)
  Sender: FDA-Public Use
  Company Number: RU-B.Braun Medical Inc.-2139090

PATIENT
  Age: 53 Year
  Sex: Female

DRUGS (2)
  1. CEFUROXIME SODIUM [Suspect]
     Active Substance: CEFUROXIME SODIUM
     Indication: Prophylaxis
  2. SODIUM CHLORIDE [Suspect]
     Active Substance: SODIUM CHLORIDE

REACTIONS (4)
  - Retinal detachment [Recovered/Resolved]
  - Cystoid macular oedema [Recovered/Resolved]
  - Corneal oedema [Recovered/Resolved]
  - Off label use [Recovered/Resolved]
